FAERS Safety Report 17741654 (Version 2)
Quarter: 2020Q4

REPORT INFORMATION
  Report Type: Spontaneous
  Country: US (occurrence: US)
  Receive Date: 20200504
  Receipt Date: 20201229
  Transmission Date: 20210113
  Serious: Yes (Other)
  Sender: FDA-Public Use
  Company Number: US-SHIRE-US202015071

PATIENT
  Sex: Female

DRUGS (1)
  1. VPRIV [Suspect]
     Active Substance: VELAGLUCERASE ALFA
     Indication: GAUCHER^S DISEASE
     Dosage: UNK DOSAGE FORM, 1X/2WKS
     Route: 042
     Dates: start: 20190516

REACTIONS (2)
  - Diverticulitis [Recovered/Resolved]
  - Product dose omission issue [Unknown]
